FAERS Safety Report 8932465 (Version 1)
Quarter: 2012Q4

REPORT INFORMATION
  Report Type: Spontaneous
  Country: US (occurrence: None)
  Receive Date: 20121126
  Receipt Date: 20121126
  Transmission Date: 20130627
  Serious: Yes (Other)
  Sender: FDA-Public Use
  Company Number: None

PATIENT
  Sex: Female
  Weight: 83.92 kg

DRUGS (3)
  1. LEVEMIR [Suspect]
     Indication: DIABETES
  2. HUMALOG [Suspect]
     Indication: DIABETES
  3. LANTUS [Concomitant]

REACTIONS (16)
  - Abdominal pain upper [None]
  - Deformity [None]
  - Stomach mass [None]
  - Vomiting [None]
  - Gastrointestinal pain [None]
  - Headache [None]
  - Pain [None]
  - Emotional distress [None]
  - Emotional distress [None]
  - Chest pain [None]
  - Feeling abnormal [None]
  - Vision blurred [None]
  - Disturbance in attention [None]
  - Hypotension [None]
  - Balance disorder [None]
  - Fatigue [None]
